FAERS Safety Report 5238289-1 (Version None)
Quarter: 2007Q1

REPORT INFORMATION
  Report Type: 
  Country: None (occurrence: None)
  Receive Date: 20070209
  Receipt Date: 20070209
  Transmission Date: 20070707
  Serious: Yes (Other)
  Sender: FDA-Public Use
  Company Number: None

PATIENT
  Age: 54 Year
  Sex: Female
  Weight: 147.419 kg

DRUGS (2)
  1. PREMARIN [Suspect]
     Indication: CARDIOVASCULAR EVENT PROPHYLAXIS
     Dosage: 620 PREMERIN DAILY PO
     Route: 048
  2. PREMARIN [Suspect]
     Indication: OSTEOPOROSIS PROPHYLAXIS
     Dosage: 620 PREMERIN DAILY PO
     Route: 048

REACTIONS (1)
  - CEREBROVASCULAR ACCIDENT [None]
